FAERS Safety Report 10621100 (Version 3)
Quarter: 2015Q4

REPORT INFORMATION
  Report Type: Spontaneous
  Country: US (occurrence: US)
  Receive Date: 20141203
  Receipt Date: 20151130
  Transmission Date: 20160304
  Serious: Yes (Other)
  Sender: FDA-Public Use
  Company Number: US-JNJCP-30000253990

PATIENT
  Age: 42 Year
  Sex: Female
  Weight: 100 kg

DRUGS (2)
  1. SHOWER TO SHOWER TALCUM PRODUCT [Suspect]
     Active Substance: TALC
     Route: 061
     Dates: start: 197101, end: 201401
  2. JOHNSON^S POWDER [Suspect]
     Active Substance: TALC
     Route: 061
     Dates: start: 197101, end: 201401

REACTIONS (1)
  - Ovarian cancer [Unknown]

NARRATIVE: CASE EVENT DATE: 201302
